FAERS Safety Report 19802722 (Version 3)
Quarter: 2022Q3

REPORT INFORMATION
  Report Type: Report from Study
  Country: CA (occurrence: CA)
  Receive Date: 20210908
  Receipt Date: 20220823
  Transmission Date: 20221026
  Serious: Yes (Hospitalization, Other)
  Sender: FDA-Public Use
  Company Number: CA-JNJFOC-20210906737

PATIENT
  Age: 5 Decade
  Sex: Male
  Weight: 75 kg

DRUGS (3)
  1. REMICADE [Suspect]
     Active Substance: INFLIXIMAB
     Indication: Crohn^s disease
     Dosage: ALSO RECEIVED ON 09-AUG-2021
     Route: 042
     Dates: start: 20210723
  2. REMICADE [Suspect]
     Active Substance: INFLIXIMAB
     Route: 042
     Dates: start: 2021
  3. REMICADE [Suspect]
     Active Substance: INFLIXIMAB
     Route: 042
     Dates: start: 20220809

REACTIONS (4)
  - Bacteraemia [Not Recovered/Not Resolved]
  - Gastrointestinal fistula [Not Recovered/Not Resolved]
  - Bowel movement irregularity [Unknown]
  - Off label use [Unknown]

NARRATIVE: CASE EVENT DATE: 20210101
